FAERS Safety Report 6051913-9 (Version None)
Quarter: 2009Q1

REPORT INFORMATION
  Report Type: 
  Country: None (occurrence: None)
  Receive Date: 20090122
  Receipt Date: 20090122
  Transmission Date: 20090719
  Serious: Yes (Other)
  Sender: FDA-Public Use
  Company Number: None

PATIENT
  Age: 73 Year
  Sex: Female
  Weight: 92.9874 kg

DRUGS (2)
  1. TEXTURNA HCT 150-12.5 NOVARTIS [Suspect]
     Indication: HYPERTENSION
     Dosage: ONE DAILY
     Dates: start: 20081001, end: 20081231
  2. BYSTOLIC [Suspect]
     Indication: HYPERTENSION
     Dosage: ONE DAILY
     Dates: start: 20081001, end: 20081231

REACTIONS (2)
  - ALOPECIA [None]
  - HAIR TEXTURE ABNORMAL [None]
